FAERS Safety Report 7462455-8 (Version None)
Quarter: 2011Q2

REPORT INFORMATION
  Report Type: 
  Country: None (occurrence: None)
  Receive Date: 20110506
  Receipt Date: 20110502
  Transmission Date: 20111010
  Serious: Yes (Hospitalization)
  Sender: FDA-Public Use
  Company Number: IT-BRISTOL-MYERS SQUIBB COMPANY-15712797

PATIENT
  Age: 85 Year
  Sex: Female

DRUGS (7)
  1. ALLOPURINOL [Concomitant]
  2. COUMADIN [Suspect]
     Indication: ATRIAL FIBRILLATION
     Route: 048
     Dates: start: 20100101, end: 20110425
  3. ISOPTIN [Concomitant]
  4. LANOXIN [Concomitant]
  5. METFORMIN [Concomitant]
  6. INSULIN [Concomitant]
  7. LASIX [Concomitant]

REACTIONS (3)
  - INTERNATIONAL NORMALISED RATIO INCREASED [None]
  - ANAEMIA [None]
  - MALLORY-WEISS SYNDROME [None]
